FAERS Safety Report 6887003-2 (Version None)
Quarter: 2010Q3

REPORT INFORMATION
  Report Type: 
  Country: None (occurrence: None)
  Receive Date: 20100708
  Receipt Date: 20100308
  Transmission Date: 20110219
  Serious: Yes (Other)
  Sender: FDA-Public Use
  Company Number: 2010030393

PATIENT
  Age: 61 Year
  Sex: Female
  Weight: 81.6 kg

DRUGS (2)
  1. CHANTIX [Suspect]
     Indication: SMOKING CESSATION THERAPY
     Dosage: 0.5 MG, 1X/ DAY, ORAL
     Route: 048
     Dates: start: 20090501, end: 20090801
  2. PAXIL CR [Concomitant]

REACTIONS (3)
  - GALLBLADDER OPERATION [None]
  - INSOMNIA [None]
  - NIGHTMARE [None]
